FAERS Safety Report 9751605 (Version 5)
Quarter: 2014Q2

REPORT INFORMATION
  Report Type: Spontaneous
  Country: US (occurrence: US)
  Receive Date: 20131212
  Receipt Date: 20140626
  Transmission Date: 20141212
  Serious: Yes (Death, Hospitalization, Other)
  Sender: FDA-Public Use
  Company Number: US-TMC-CABO-13003718

PATIENT
  Age: 53 Year
  Sex: Male

DRUGS (10)
  1. COMETRIQ [Suspect]
     Indication: THYROID CANCER
     Dosage: 140 MG, QD
     Route: 048
     Dates: start: 20130131, end: 201406
  2. LEVOTHYROXINE [Concomitant]
  3. KLOR-CON [Concomitant]
  4. MAGNESIUM OXIDE [Concomitant]
  5. WARFARIN [Concomitant]
  6. AMLODIPINE [Concomitant]
  7. CALCIUM [Concomitant]
  8. LOMOTIL [Concomitant]
  9. LOPERAMIDE [Concomitant]
  10. AMIODARONE [Concomitant]

REACTIONS (7)
  - Death [Fatal]
  - Central nervous system lesion [Unknown]
  - Loss of consciousness [Recovered/Resolved]
  - Transient ischaemic attack [Unknown]
  - Diarrhoea [Unknown]
  - Dysarthria [Recovered/Resolved]
  - Vomiting [Unknown]
